APPROVED DRUG PRODUCT: TOLAZAMIDE
Active Ingredient: TOLAZAMIDE
Strength: 100MG
Dosage Form/Route: TABLET;ORAL
Application: N018894 | Product #001
Applicant: COSETTE PHARMACEUTICALS INC
Approved: Nov 2, 1984 | RLD: No | RS: No | Type: DISCN